FAERS Safety Report 18103533 (Version 1)
Quarter: 2020Q3

REPORT INFORMATION
  Report Type: Spontaneous
  Country: DE (occurrence: DE)
  Receive Date: 20200803
  Receipt Date: 20200803
  Transmission Date: 20201103
  Serious: Yes (Other)
  Sender: FDA-Public Use
  Company Number: NVSC2020DE210447

PATIENT
  Sex: Male

DRUGS (1)
  1. GENTAMICIN SULFATE. [Suspect]
     Active Substance: GENTAMICIN SULFATE
     Indication: SINUSITIS
     Dosage: UNK UNK, QID
     Route: 045

REACTIONS (5)
  - Eustachian tube disorder [Recovering/Resolving]
  - Off label use [Unknown]
  - Otitis media [Recovering/Resolving]
  - Tinnitus [Recovering/Resolving]
  - Hypoacusis [Recovering/Resolving]
